FAERS Safety Report 5193330-X (Version None)
Quarter: 2006Q4

REPORT INFORMATION
  Report Type: 
  Country: None (occurrence: None)
  Receive Date: 20061228
  Receipt Date: 20060925
  Transmission Date: 20070319
  Serious: No
  Sender: FDA-Public Use
  Company Number: US-GLAXOSMITHKLINE-A0621328A

PATIENT
  Sex: Male

DRUGS (9)
  1. AVODART [Suspect]
     Indication: BENIGN PROSTATIC HYPERPLASIA
     Dosage: .5MG PER DAY
     Route: 048
     Dates: start: 20060201
  2. PLAVIX [Concomitant]
  3. ASPARIN [Concomitant]
  4. LOPRESSOR [Concomitant]
  5. BUSPAR [Concomitant]
  6. ZOCOR [Concomitant]
  7. COUMADIN [Concomitant]
  8. DIAZEPAM [Concomitant]
  9. FISH OIL [Concomitant]

REACTIONS (1)
  - PENIS DISORDER [None]
